FAERS Safety Report 6658800-3 (Version None)
Quarter: 2010Q1

REPORT INFORMATION
  Report Type: 
  Country: None (occurrence: None)
  Receive Date: 20100330
  Receipt Date: 20100326
  Transmission Date: 20100710
  Serious: Yes (Death, Life-Threatening, Hospitalization, Other)
  Sender: FDA-Public Use
  Company Number: PHHY2009JP54662

PATIENT
  Age: 59 Year
  Sex: Male

DRUGS (7)
  1. NEORAL [Suspect]
     Indication: INTERSTITIAL LUNG DISEASE
     Dosage: 80 MG/DAY
     Route: 048
     Dates: start: 20061201
  2. NEORAL [Suspect]
     Dosage: 120 MG/DAY
     Route: 048
     Dates: start: 20070301
  3. NEORAL [Suspect]
     Dosage: 80 MG/DAY
     Route: 048
     Dates: start: 20070501
  4. STEROIDS NOS [Concomitant]
     Indication: INTERSTITIAL LUNG DISEASE
     Dosage: UNK
     Dates: start: 20021101
  5. PREDNISOLONE [Concomitant]
     Indication: INTERSTITIAL LUNG DISEASE
     Dosage: UNK
     Dates: start: 20050101
  6. OXYGEN THERAPY [Concomitant]
     Indication: INTERSTITIAL LUNG DISEASE
     Dosage: UNK
     Dates: start: 20030101
  7. CYCLOPHOSPHAMIDE [Concomitant]
     Indication: INTERSTITIAL LUNG DISEASE
     Dosage: UNK
     Dates: start: 20050101

REACTIONS (4)
  - DYSPNOEA [None]
  - INTERSTITIAL LUNG DISEASE [None]
  - OESOPHAGEAL CARCINOMA [None]
  - RESPIRATORY FAILURE [None]
